FAERS Safety Report 8767243 (Version 4)
Quarter: 2012Q4

REPORT INFORMATION
  Report Type: 
  Country: US (occurrence: US)
  Receive Date: 20120904
  Receipt Date: 20121022
  Transmission Date: 20130627
  Serious: Yes (Other)
  Sender: FDA-Public Use
  Company Number: US-JNJFOC-20100802801

PATIENT
  Sex: Female

DRUGS (6)
  1. LEVAQUIN [Suspect]
     Indication: BACTERIAL INFECTION
     Route: 048
  2. LEVAQUIN [Suspect]
     Indication: ASTHMA
     Route: 042
  3. PREDNISONE [Suspect]
     Indication: ASTHMA
     Route: 048
  4. ADVAIR [Suspect]
     Indication: ASTHMA
     Route: 065
  5. OFLOXACIN [Suspect]
     Indication: EYE INFECTION
     Route: 065
  6. CORTICOSTEROIDS [Suspect]
     Indication: ASTHMA
     Route: 042

REACTIONS (3)
  - Tendon rupture [Unknown]
  - Rotator cuff syndrome [Unknown]
  - Rotator cuff syndrome [Unknown]
